FAERS Safety Report 8019371-2 (Version None)
Quarter: 2012Q1

REPORT INFORMATION
  Report Type: 
  Country: None (occurrence: None)
  Receive Date: 20120103
  Receipt Date: 20111221
  Transmission Date: 20120608
  Serious: Yes (Other)
  Sender: FDA-Public Use
  Company Number: PHHY2011DE68018

PATIENT
  Sex: Female
  Weight: 55 kg

DRUGS (3)
  1. DEKRISTOL [Concomitant]
     Indication: OSTEOPOROSIS
     Dosage: 2000 IU/WEEK
  2. ZOLEDRONOC ACID [Suspect]
     Dosage: 5 MG ONCE YEARLY
     Route: 042
     Dates: start: 20100128
  3. ZOLEDRONOC ACID [Suspect]
     Dosage: 5 MG, UNK
     Route: 042
     Dates: start: 20110207, end: 20110207

REACTIONS (2)
  - SPINAL COMPRESSION FRACTURE [None]
  - BONE PAIN [None]
